FAERS Safety Report 4523837-7 (Version None)
Quarter: 2004Q4

REPORT INFORMATION
  Report Type: 
  Country: None (occurrence: None)
  Receive Date: 20041210
  Receipt Date: 20041020
  Transmission Date: 20050328
  Serious: Yes (Hospitalization)
  Sender: FDA-Public Use
  Company Number: PHRM2004FR03182

PATIENT
  Age: 79 Year
  Sex: Male
  Weight: 70 kg

DRUGS (4)
  1. DAFLON [Concomitant]
  2. ELISOR [Concomitant]
  3. DOLIPRANE [Concomitant]
  4. COTAREG [Suspect]
     Indication: HYPERTENSION
     Dosage: 1 DF, BID
     Route: 048
     Dates: start: 20040801, end: 20041018

REACTIONS (6)
  - DIZZINESS [None]
  - DYSPNOEA [None]
  - HOT FLUSH [None]
  - HYPERTENSIVE CRISIS [None]
  - POLLAKIURIA [None]
  - TREMOR [None]
